FAERS Safety Report 16140471 (Version 1)
Quarter: 2019Q2

REPORT INFORMATION
  Report Type: Spontaneous
  Country: US (occurrence: US)
  Receive Date: 20190401
  Receipt Date: 20190401
  Transmission Date: 20190711
  Serious: No
  Sender: FDA-Public Use
  Company Number: US-SEPTODONT-201804583

PATIENT
  Age: 62 Year
  Sex: Female
  Weight: 65.8 kg

DRUGS (2)
  1. LIGNOSPAN STANDARD [Suspect]
     Active Substance: EPINEPHRINE BITARTRATE\LIDOCAINE HYDROCHLORIDE
     Indication: DENTAL LOCAL ANAESTHESIA
     Route: 004
     Dates: start: 20180305, end: 20180305
  2. LIGNOSPAN STANDARD [Suspect]
     Active Substance: EPINEPHRINE BITARTRATE\LIDOCAINE HYDROCHLORIDE
     Indication: DENTAL LOCAL ANAESTHESIA
     Route: 004
     Dates: start: 20180305, end: 20180305

REACTIONS (3)
  - Pain [Recovering/Resolving]
  - Lip exfoliation [Recovering/Resolving]
  - Oral mucosal exfoliation [Recovering/Resolving]

NARRATIVE: CASE EVENT DATE: 20180305
